FAERS Safety Report 15515053 (Version 2)
Quarter: 2018Q4

REPORT INFORMATION
  Report Type: Report from Study
  Country: US (occurrence: US)
  Receive Date: 20181017
  Receipt Date: 20181030
  Transmission Date: 20190205
  Serious: Yes (Hospitalization, Disabling, Other)
  Sender: FDA-Public Use
  Company Number: US-BEH-2018095720

PATIENT
  Age: 82 Year
  Sex: Male
  Weight: 33.16 kg

DRUGS (1)
  1. BERIPLEX P/N [Suspect]
     Active Substance: COAGULATION FACTOR IX HUMAN\COAGULATION FACTOR VII HUMAN\COAGULATION FACTOR X HUMAN\PROTEIN C\PROTEIN S HUMAN\PROTHROMBIN
     Indication: COAGULOPATHY
     Dosage: 983 IU, UNK
     Route: 042
     Dates: start: 20181004

REACTIONS (4)
  - Musculoskeletal disorder [Recovering/Resolving]
  - Cerebral infarction [Recovering/Resolving]
  - Cardiac output decreased [Recovering/Resolving]
  - Haemodynamic instability [Recovering/Resolving]

NARRATIVE: CASE EVENT DATE: 20181004
